FAERS Safety Report 10442149 (Version 2)
Quarter: 2014Q3

REPORT INFORMATION
  Report Type: Spontaneous
  Country: BR (occurrence: BR)
  Receive Date: 20140909
  Receipt Date: 20140909
  Transmission Date: 20150326
  Serious: Yes (Death, Hospitalization)
  Sender: FDA-Public Use
  Company Number: BR-BRISTOL-MYERS SQUIBB COMPANY-19505726

PATIENT
  Age: 40 Year
  Sex: Male

DRUGS (2)
  1. ERBITUX [Suspect]
     Active Substance: CETUXIMAB
     Indication: TONGUE NEOPLASM MALIGNANT STAGE UNSPECIFIED
     Route: 042
     Dates: start: 20130627, end: 20130718
  2. PACLITAXEL. [Suspect]
     Active Substance: PACLITAXEL
     Indication: TONGUE NEOPLASM MALIGNANT STAGE UNSPECIFIED

REACTIONS (5)
  - Abdominal distension [Unknown]
  - Depressed level of consciousness [Unknown]
  - Painful respiration [Fatal]
  - Respiratory arrest [Unknown]
  - Bloody discharge [Unknown]

NARRATIVE: CASE EVENT DATE: 20130718
